FAERS Safety Report 20922240 (Version 1)
Quarter: 2022Q2

REPORT INFORMATION
  Report Type: Spontaneous
  Country: US (occurrence: US)
  Receive Date: 20220607
  Receipt Date: 20220607
  Transmission Date: 20220721
  Serious: No
  Sender: FDA-Public Use
  Company Number: US-TARO PHARMACEUTICALS USA INC.-2021TAR00633

PATIENT

DRUGS (3)
  1. CLOTRIMAZOLE [Suspect]
     Active Substance: CLOTRIMAZOLE
     Indication: Vulvovaginal burning sensation
     Dosage: ONCE, 1/2 OF THE APPLICATOR, ONCE LAST NIGHT
     Route: 067
     Dates: start: 20210609
  2. CLOTRIMAZOLE [Suspect]
     Active Substance: CLOTRIMAZOLE
     Indication: Vulvovaginal erythema
  3. CLOTRIMAZOLE [Suspect]
     Active Substance: CLOTRIMAZOLE
     Indication: Vulvovaginal discomfort

REACTIONS (1)
  - Urine abnormality [Not Recovered/Not Resolved]

NARRATIVE: CASE EVENT DATE: 20210609
